FAERS Safety Report 11359708 (Version 1)
Quarter: 2015Q3

REPORT INFORMATION
  Report Type: Report from Study
  Country: KR (occurrence: KR)
  Receive Date: 20150808
  Receipt Date: 20150808
  Transmission Date: 20151125
  Serious: Yes (Hospitalization)
  Sender: FDA-Public Use
  Company Number: KR-BRISTOL-MYERS SQUIBB COMPANY-BMS-2015-050307

PATIENT
  Age: 73 Year
  Sex: Female

DRUGS (18)
  1. MAXIPIME [Concomitant]
     Active Substance: CEFEPIME HYDROCHLORIDE
     Indication: PRODUCT USED FOR UNKNOWN INDICATION
     Dosage: 2 G, UNK
     Route: 042
     Dates: start: 20150723
  2. VARIDASE [Concomitant]
     Indication: PRODUCT USED FOR UNKNOWN INDICATION
     Dosage: 2 TAB, BID
     Route: 065
     Dates: start: 20150624, end: 20150701
  3. YAMATETAN [Concomitant]
     Indication: PRODUCT USED FOR UNKNOWN INDICATION
     Dosage: 2 G, UNK
     Route: 042
     Dates: start: 20150624, end: 20150701
  4. COUGH SYRUP [Concomitant]
     Active Substance: DEXTROMETHORPHAN HYDROBROMIDE\GUAIFENESIN
     Indication: PRODUCT USED FOR UNKNOWN INDICATION
     Dosage: 60 ML, TID
     Route: 065
     Dates: start: 20150718
  5. LEFOCIN [Concomitant]
     Indication: PRODUCT USED FOR UNKNOWN INDICATION
     Dosage: 750 MG, UNK
     Route: 042
  6. GASTER [Concomitant]
     Active Substance: FAMOTIDINE
     Indication: PRODUCT USED FOR UNKNOWN INDICATION
     Dosage: 40 MG, BID
     Route: 065
     Dates: start: 20150624, end: 20150701
  7. CLEXANE [Concomitant]
     Active Substance: ENOXAPARIN SODIUM
     Indication: PRODUCT USED FOR UNKNOWN INDICATION
     Dosage: 40 MG, UNK
     Route: 058
     Dates: start: 20150624, end: 20150701
  8. ASUNAPREVIR [Suspect]
     Active Substance: ASUNAPREVIR
     Indication: HEPATITIS C
     Dosage: 100 MG,
     Route: 065
     Dates: start: 20150330
  9. AROBEST [Concomitant]
     Indication: PRODUCT USED FOR UNKNOWN INDICATION
     Dosage: 40 MG, BID
     Route: 065
     Dates: start: 20150723
  10. SILYMARIN [Concomitant]
     Active Substance: MILK THISTLE
     Indication: PRODUCT USED FOR UNKNOWN INDICATION
     Dosage: 280 MG, BID
     Route: 065
     Dates: start: 20150624, end: 20150701
  11. THIAMIN [Concomitant]
     Active Substance: THIAMINE
     Indication: PRODUCT USED FOR UNKNOWN INDICATION
     Dosage: 20 MG, BID
     Route: 065
     Dates: start: 20150624, end: 20150701
  12. GLIPTIDE [Concomitant]
     Indication: PRODUCT USED FOR UNKNOWN INDICATION
     Dosage: 400 MG, BID
     Route: 065
     Dates: start: 20150723
  13. DACLATASVIR DIHYDROCHLORIDE [Suspect]
     Active Substance: DACLATASVIR DIHYDROCHLORIDE
     Indication: HEPATITIS C
     Dosage: 60 MG,
     Route: 065
     Dates: start: 20150330
  14. PARAMACET [Concomitant]
     Indication: PRODUCT USED FOR UNKNOWN INDICATION
     Dosage: 2 TAB, BID
     Route: 065
     Dates: start: 20150624, end: 20150701
  15. LIVACT                             /00847901/ [Concomitant]
     Active Substance: ISOLEUCINE\LEUCINE\VALINE
     Indication: PRODUCT USED FOR UNKNOWN INDICATION
     Dosage: 8.3 G, BID
     Route: 065
     Dates: start: 20150624, end: 20150701
  16. FOLIC ACID. [Concomitant]
     Active Substance: FOLIC ACID
     Indication: PRODUCT USED FOR UNKNOWN INDICATION
     Dosage: 1 MG, QD
     Route: 065
     Dates: start: 20150624, end: 20150701
  17. PANTOLOC                           /01263204/ [Concomitant]
     Active Substance: PANTOPRAZOLE SODIUM
     Indication: PRODUCT USED FOR UNKNOWN INDICATION
     Dosage: 20 MG, QD
     Route: 065
     Dates: start: 20150624, end: 20150701
  18. CELEBREX [Concomitant]
     Active Substance: CELECOXIB
     Indication: PRODUCT USED FOR UNKNOWN INDICATION
     Dosage: 400 MG, BID
     Route: 065
     Dates: start: 20150723

REACTIONS (2)
  - Arthralgia [Unknown]
  - Pyrexia [Unknown]

NARRATIVE: CASE EVENT DATE: 20150624
